FAERS Safety Report 18609436 (Version 3)
Quarter: 2023Q4

REPORT INFORMATION
  Report Type: Spontaneous
  Country: FR (occurrence: FR)
  Receive Date: 20201214
  Receipt Date: 20231214
  Transmission Date: 20240109
  Serious: Yes (Congenital Anomaly, Other)
  Sender: FDA-Public Use
  Company Number: None

PATIENT
  Sex: Female
  Weight: 2.98 kg

DRUGS (3)
  1. KEPPRA [Suspect]
     Active Substance: LEVETIRACETAM
     Indication: Product used for unknown indication
     Dosage: 4 DOSAGE FORM, ONCE DAILY (QD)
     Route: 064
     Dates: end: 20091228
  2. VALPROATE SODIUM [Suspect]
     Active Substance: VALPROATE SODIUM
     Indication: Product used for unknown indication
     Dosage: 500/ 2.5 TABLET PER DAY
     Route: 064
     Dates: end: 20091228
  3. FOLIC ACID [Concomitant]
     Active Substance: FOLIC ACID
     Indication: Product used for unknown indication
     Dosage: 5 MG, QD
     Route: 064
     Dates: end: 20091228

REACTIONS (28)
  - Hypertelorism [Unknown]
  - Developmental delay [Unknown]
  - Disturbance in attention [Unknown]
  - Joint dislocation [Unknown]
  - Dysgraphia [Unknown]
  - Learning disorder [Unknown]
  - Reading disorder [Recovering/Resolving]
  - Dyscalculia [Recovering/Resolving]
  - Autonomic nervous system imbalance [Unknown]
  - Bronchiolitis [Unknown]
  - Ligament disorder [Recovering/Resolving]
  - Dysarthria [Unknown]
  - Congenital laryngeal stridor [Unknown]
  - Finger deformity [Recovering/Resolving]
  - Ear malformation [Unknown]
  - Intellectual disability [Unknown]
  - Ear infection [Unknown]
  - Rhinitis [Unknown]
  - Nasopharyngitis [Unknown]
  - Cognitive disorder [Unknown]
  - Bronchitis [Unknown]
  - Cough [Unknown]
  - Laryngitis [Unknown]
  - Myopia [Unknown]
  - Memory impairment [Unknown]
  - Language disorder [Unknown]
  - Ear pain [Unknown]
  - Maternal exposure during pregnancy [Unknown]

NARRATIVE: CASE EVENT DATE: 20091228
